FAERS Safety Report 5443017-0 (Version None)
Quarter: 2007Q3

REPORT INFORMATION
  Report Type: 
  Country: None (occurrence: None)
  Receive Date: 20070905
  Receipt Date: 20070827
  Transmission Date: 20080115
  Serious: Yes (Hospitalization, Other)
  Sender: FDA-Public Use
  Company Number: PHBS2007JP05150

PATIENT
  Age: 76 Year
  Sex: Female
  Weight: 55 kg

DRUGS (5)
  1. VOLTAREN [Suspect]
     Indication: BACK PAIN
     Dosage: 50 MG/DAY
     Route: 054
     Dates: start: 20021029
  2. LOXOPROFEN [Suspect]
  3. ASPIRIN [Suspect]
  4. HYPEN [Suspect]
  5. VOLTAREN - SLOW RELEASE ^NOVARTIS^ [Concomitant]

REACTIONS (7)
  - BLOOD LACTATE DEHYDROGENASE INCREASED [None]
  - C-REACTIVE PROTEIN INCREASED [None]
  - DRUG HYPERSENSITIVITY [None]
  - DYSPNOEA [None]
  - ELECTROCARDIOGRAM ABNORMAL [None]
  - ORAL DISCOMFORT [None]
  - URTICARIA [None]
